FAERS Safety Report 4367402-3 (Version None)
Quarter: 2004Q2

REPORT INFORMATION
  Report Type: 
  Country: None (occurrence: None)
  Receive Date: 20040521
  Receipt Date: 20040331
  Transmission Date: 20050107
  Serious: Yes (Hospitalization)
  Sender: FDA-Public Use
  Company Number: 200412419US

PATIENT
  Sex: Female

DRUGS (3)
  1. LANTUS [Suspect]
     Indication: DIABETES MELLITUS
     Dosage: ONCE
     Dates: start: 20040325, end: 20040325
  2. THIAMAZOLE (TAPAZOLE) [Suspect]
     Indication: BASEDOW'S DISEASE
  3. HUMALOG [Concomitant]

REACTIONS (3)
  - ANAPHYLACTIC REACTION [None]
  - ANGIONEUROTIC OEDEMA [None]
  - URTICARIA [None]
